FAERS Safety Report 4404686-7 (Version None)
Quarter: 2004Q3

REPORT INFORMATION
  Report Type: 
  Country: None (occurrence: None)
  Receive Date: 20040720
  Receipt Date: 20040707
  Transmission Date: 20050211
  Serious: Yes (Death)
  Sender: FDA-Public Use
  Company Number: 04-00321

PATIENT
  Age: 13 Year
  Sex: Male

DRUGS (1)
  1. LINDANE SHAMPOO USP, 1% (ALPHARMA) [Suspect]
     Indication: LICE INFESTATION
     Dosage: 1%

REACTIONS (2)
  - CONVULSION [None]
  - SUDDEN DEATH [None]
